FAERS Safety Report 8333829-8 (Version None)
Quarter: 2012Q1

REPORT INFORMATION
  Report Type: 
  Country: None (occurrence: None)
  Receive Date: 20120328
  Receipt Date: 20100817
  Transmission Date: 20120608
  Serious: Yes (Other)
  Sender: FDA-Public Use
  Company Number: PHHY2010US54520

PATIENT
  Age: 72 Year
  Sex: Male
  Weight: 89.8 kg

DRUGS (1)
  1. VALTURNA [Suspect]
     Indication: HYPERTENSION
     Dosage: 320/300, QD, ORAL
     Route: 048
     Dates: start: 20100729, end: 20100812

REACTIONS (1)
  - RENAL IMPAIRMENT [None]
